FAERS Safety Report 15424196 (Version 1)
Quarter: 2018Q3

REPORT INFORMATION
  Report Type: Spontaneous
  Country: US (occurrence: US)
  Receive Date: 20180925
  Receipt Date: 20180925
  Transmission Date: 20181010
  Serious: Yes (Other)
  Sender: FDA-Public Use
  Company Number: US-SA-2018SA261980

PATIENT

DRUGS (1)
  1. AMBIEN [Suspect]
     Active Substance: ZOLPIDEM TARTRATE

REACTIONS (8)
  - Wound infection [Unknown]
  - Abdominal discomfort [Unknown]
  - Urinary tract infection [Unknown]
  - Clostridium difficile infection [Unknown]
  - Drug ineffective [Unknown]
  - Decubitus ulcer [Unknown]
  - Pyrexia [Unknown]
  - Intentional overdose [Unknown]
